FAERS Safety Report 14254375 (Version 1)
Quarter: 2017Q4

REPORT INFORMATION
  Report Type: Spontaneous
  Country: TW (occurrence: TW)
  Receive Date: 20171206
  Receipt Date: 20171206
  Transmission Date: 20180321
  Serious: Yes (Hospitalization, Other)
  Sender: FDA-Public Use
  Company Number: TW-ACCORD-061590

PATIENT
  Age: 60 Year
  Sex: Male

DRUGS (7)
  1. ATORVASTATIN [Concomitant]
     Active Substance: ATORVASTATIN
  2. VALSARTAN. [Concomitant]
     Active Substance: VALSARTAN
  3. SPIRONOLACTONE. [Concomitant]
     Active Substance: SPIRONOLACTONE
  4. CLONIDINE. [Concomitant]
     Active Substance: CLONIDINE
  5. FUROSEMIDE. [Suspect]
     Active Substance: FUROSEMIDE
     Indication: OEDEMA PERIPHERAL
  6. ATENOLOL/ATENOLOL HYDROCHLORIDE [Concomitant]
  7. PREDNISOLONE. [Concomitant]
     Active Substance: PREDNISOLONE
     Dosage: 20 MG EVERY OTHER DAY

REACTIONS (2)
  - Renal impairment [Recovered/Resolved]
  - Pancreatitis acute [Recovered/Resolved]
